FAERS Safety Report 24697569 (Version 2)
Quarter: 2025Q2

REPORT INFORMATION
  Report Type: Report from Study
  Country: US (occurrence: US)
  Receive Date: 20241204
  Receipt Date: 20250626
  Transmission Date: 20250717
  Serious: No
  Sender: AVERITAS
  Company Number: US-GRUNENTHAL-2024-137493

PATIENT
  Sex: Male

DRUGS (1)
  1. QUTENZA [Suspect]
     Active Substance: CAPSAICIN
     Indication: Diabetic neuropathy
     Route: 061
     Dates: start: 2024, end: 2024

REACTIONS (1)
  - Application site pain [Unknown]
